FAERS Safety Report 13584497 (Version 1)
Quarter: 2017Q2

REPORT INFORMATION
  Report Type: Spontaneous
  Country: US (occurrence: US)
  Receive Date: 20170526
  Receipt Date: 20170526
  Transmission Date: 20170830
  Serious: No
  Sender: FDA-Public Use
  Company Number: US-TEVA-740817USA

PATIENT

DRUGS (1)
  1. CELECOXIB. [Suspect]
     Active Substance: CELECOXIB
     Route: 065

REACTIONS (5)
  - Phobia of driving [Unknown]
  - Motor dysfunction [Unknown]
  - Visual impairment [Unknown]
  - Drug ineffective [Unknown]
  - Headache [Unknown]
